FAERS Safety Report 9109766 (Version 1)
Quarter: 2013Q1

REPORT INFORMATION
  Report Type: Spontaneous
  Country: US (occurrence: US)
  Receive Date: 20130222
  Receipt Date: 20130222
  Transmission Date: 20140127
  Serious: Yes (Other)
  Sender: FDA-Public Use
  Company Number: US-BAYER-2013-023029

PATIENT
  Age: 46 Year
  Sex: Male

DRUGS (3)
  1. AVELOX [Suspect]
     Dosage: UNK, (HAD BEEN USING IT FOR 4 MONTHS)
  2. Z-PAK [Suspect]
     Dosage: UNK,  (HAD BEEN USING IT FOR 4 MONTHS)
  3. ANTIBIOTICS [Suspect]
     Dosage: UNK,  (HAD BEEN USING IT FOR 4 MONTHS)

REACTIONS (2)
  - Cerebrovascular accident [None]
  - Dizziness [None]
